FAERS Safety Report 23666007 (Version 1)
Quarter: 2024Q1

REPORT INFORMATION
  Report Type: Spontaneous
  Country: FR (occurrence: FR)
  Receive Date: 20240323
  Receipt Date: 20240323
  Transmission Date: 20240410
  Serious: Yes (Other)
  Sender: FDA-Public Use
  Company Number: FR-AMGEN-FRASP2024055786

PATIENT
  Age: 53 Year
  Sex: Male

DRUGS (3)
  1. ADALIMUMAB [Suspect]
     Active Substance: ADALIMUMAB\ISOPROPYL ALCOHOL
     Indication: Spondyloarthropathy
     Dosage: UNK
     Route: 065
  2. ETANERCEPT [Concomitant]
     Active Substance: ETANERCEPT
     Indication: Spondyloarthropathy
     Dosage: UNK
     Route: 065
  3. INFLIXIMAB [Concomitant]
     Active Substance: INFLIXIMAB
     Indication: Spondyloarthropathy
     Dosage: UNK
     Route: 042

REACTIONS (15)
  - Cataract [Unknown]
  - Whipple^s disease [Unknown]
  - Hepatitis B [Unknown]
  - Uveitis [Unknown]
  - Optic neuritis [Unknown]
  - Blindness [Unknown]
  - Chorioretinitis [Unknown]
  - Vitritis [Recovering/Resolving]
  - Macular oedema [Unknown]
  - Immune recovery uveitis [Unknown]
  - Drug ineffective [Unknown]
  - Vitreous disorder [Unknown]
  - Microcytic anaemia [Unknown]
  - Intraocular pressure increased [Unknown]
  - Vitreous floaters [Recovering/Resolving]
